FAERS Safety Report 18463128 (Version 1)
Quarter: 2020Q4

REPORT INFORMATION
  Report Type: Spontaneous
  Country: US (occurrence: US)
  Receive Date: 20201104
  Receipt Date: 20201104
  Transmission Date: 20210114
  Serious: Yes (Other)
  Sender: FDA-Public Use
  Company Number: US-PFIZER INC-2020423977

PATIENT
  Age: 80 Year
  Sex: Female
  Weight: 40.37 kg

DRUGS (2)
  1. CHANTIX [Suspect]
     Active Substance: VARENICLINE TARTRATE
     Indication: SMOKING CESSATION THERAPY
     Dosage: 1 DF (ONE PILL)
     Route: 048
  2. CHANTIX [Suspect]
     Active Substance: VARENICLINE TARTRATE
     Dosage: 2 DF, DAILY (TAKES TWO PILLS A DAY)
     Route: 048

REACTIONS (2)
  - Product dose omission issue [Unknown]
  - Pneumonia [Recovered/Resolved]
